FAERS Safety Report 14652653 (Version 1)
Quarter: 2018Q1

REPORT INFORMATION
  Report Type: Other
  Country: IT (occurrence: IT)
  Receive Date: 20180319
  Receipt Date: 20180319
  Transmission Date: 20180509
  Serious: Yes (Hospitalization)
  Sender: FDA-Public Use
  Company Number: IT-ACCORD-064609

PATIENT
  Age: 83 Year
  Sex: Male

DRUGS (9)
  1. TORVAST [Concomitant]
     Active Substance: ATORVASTATIN
  2. CARDICOR [Concomitant]
     Active Substance: BISOPROLOL
  3. SERTRALINE [Suspect]
     Active Substance: SERTRALINE HYDROCHLORIDE
     Indication: DEPRESSION
     Route: 048
     Dates: start: 20170101, end: 20171227
  4. LASIX [Suspect]
     Active Substance: FUROSEMIDE
     Indication: HYPERTENSION
     Dosage: STRENGTH: 25 MG
     Route: 048
     Dates: start: 20170101, end: 20171227
  5. PLAVIX [Concomitant]
     Active Substance: CLOPIDOGREL BISULFATE
     Dosage: STRENGTH: 75 MG
  6. CARDIOASPIRIN [Concomitant]
     Active Substance: ASPIRIN
     Dosage: STRENGTH: 100 MG
  7. ALDACTONE [Suspect]
     Active Substance: SPIRONOLACTONE
     Indication: HYPERTENSION
     Dosage: STRENGTH: 100 MG
     Route: 048
     Dates: start: 20170101, end: 20171227
  8. LANSOX [Concomitant]
     Active Substance: LANSOPRAZOLE
  9. ZYLORIC [Concomitant]
     Active Substance: ALLOPURINOL

REACTIONS (3)
  - Hyponatraemia [Unknown]
  - Chronic kidney disease [Unknown]
  - Hyperkalaemia [Unknown]

NARRATIVE: CASE EVENT DATE: 20171227
